FAERS Safety Report 20994792 (Version 1)
Quarter: 2022Q2

REPORT INFORMATION
  Report Type: Spontaneous
  Country: US (occurrence: None)
  Receive Date: 20220622
  Receipt Date: 20220622
  Transmission Date: 20220721
  Serious: Yes (Hospitalization)
  Sender: FDA-Public Use
  Company Number: None

PATIENT
  Age: 67 Year
  Sex: Female

DRUGS (3)
  1. KEPPRA [Suspect]
     Active Substance: LEVETIRACETAM
  2. DDAVP [Suspect]
     Active Substance: DESMOPRESSIN ACETATE
  3. NOREPINEPHRINE BITARTRATE [Suspect]
     Active Substance: NOREPINEPHRINE BITARTRATE

REACTIONS (5)
  - Wrong technique in product usage process [None]
  - Incorrect route of product administration [None]
  - Nausea [None]
  - Headache [None]
  - Product dispensing error [None]
